FAERS Safety Report 11352400 (Version 1)
Quarter: 2015Q3

REPORT INFORMATION
  Report Type: Spontaneous
  Country: US (occurrence: US)
  Receive Date: 20150807
  Receipt Date: 20150807
  Transmission Date: 20151125
  Serious: No
  Sender: FDA-Public Use
  Company Number: US-JNJFOC-20140824529

PATIENT
  Age: 38 Year
  Sex: Male
  Weight: 91.63 kg

DRUGS (2)
  1. MENS ROGAINE EXTRA STRENGTH [Suspect]
     Active Substance: MINOXIDIL
     Route: 061
  2. MENS ROGAINE EXTRA STRENGTH [Suspect]
     Active Substance: MINOXIDIL
     Indication: HAIR GROWTH ABNORMAL
     Dosage: FOR ABOUT 2 MONTHS.
     Route: 061

REACTIONS (6)
  - Pruritus [Unknown]
  - Hypertension [Unknown]
  - Vision blurred [Unknown]
  - Skin irritation [Unknown]
  - Flushing [Unknown]
  - Dermatitis [Unknown]
